FAERS Safety Report 7029566-2 (Version None)
Quarter: 2010Q4

REPORT INFORMATION
  Report Type: 
  Country: None (occurrence: None)
  Receive Date: 20101005
  Receipt Date: 20100924
  Transmission Date: 20110411
  Serious: Yes (Other)
  Sender: FDA-Public Use
  Company Number: BR-GILEAD-2009-0026213

PATIENT
  Sex: Female
  Weight: 53.2 kg

DRUGS (3)
  1. TENOFOVIR DISOPROXIL FUMARATE [Suspect]
     Indication: HIV INFECTION
     Dates: start: 20070714, end: 20091221
  2. LOPINAVIR AND RITONAVIR [Concomitant]
     Indication: HIV INFECTION
     Dates: start: 20070614
  3. COMBIVIR [Concomitant]
     Indication: HIV INFECTION
     Dates: start: 20070322

REACTIONS (2)
  - ABORTION SPONTANEOUS [None]
  - PREGNANCY [None]
